FAERS Safety Report 8644112 (Version 2)
Quarter: 2012Q4

REPORT INFORMATION
  Report Type: Report from Study
  Country: US (occurrence: US)
  Receive Date: 20120629
  Receipt Date: 20121026
  Transmission Date: 20130627
  Serious: Yes (Other)
  Sender: FDA-Public Use
  Company Number: US-ABBOTT-12P-163-0948273-00

PATIENT
  Sex: Female
  Weight: 62.2 kg

DRUGS (2)
  1. HUMIRA 40 MG/0.8 ML PEN [Suspect]
     Indication: PSORIASIS
     Route: 058
     Dates: start: 201111
  2. DIOVAN [Concomitant]
     Indication: BLOOD PRESSURE

REACTIONS (1)
  - Pulmonary mass [Not Recovered/Not Resolved]
